FAERS Safety Report 9154780 (Version 1)
Quarter: 2013Q1

REPORT INFORMATION
  Report Type: Spontaneous
  Country: DK (occurrence: FR)
  Receive Date: 20130311
  Receipt Date: 20130311
  Transmission Date: 20140127
  Serious: Yes (Hospitalization)
  Sender: FDA-Public Use
  Company Number: FR-FRI-1000043239

PATIENT
  Age: 83 Year
  Sex: Male

DRUGS (5)
  1. ESCITALOPRAM [Suspect]
     Dosage: 5 MG
     Route: 048
     Dates: start: 20130104, end: 20130126
  2. ASPEGIC [Concomitant]
     Dosage: 100 MG
     Dates: start: 20121211
  3. TRIATEC [Concomitant]
     Dosage: 1.25 MG
     Dates: start: 20121213
  4. TRIATEC [Concomitant]
     Dates: start: 20121221
  5. BISOCE [Concomitant]
     Dates: start: 20121215, end: 20130115

REACTIONS (2)
  - Urinary retention [Recovering/Resolving]
  - Aphasia [Recovered/Resolved]
